FAERS Safety Report 6575688-X (Version None)
Quarter: 2010Q1

REPORT INFORMATION
  Report Type: 
  Country: None (occurrence: None)
  Receive Date: 20100208
  Receipt Date: 20100208
  Transmission Date: 20100710
  Serious: Yes (Other)
  Sender: FDA-Public Use
  Company Number: None

PATIENT
  Age: 61 Year
  Sex: Female
  Weight: 63.5036 kg

DRUGS (1)
  1. EVISTA [Suspect]
     Indication: OSTEOPENIA
     Dosage: 1 TAB DAILY PO
     Route: 048
     Dates: start: 20091010, end: 20100107

REACTIONS (6)
  - ARTHRITIS [None]
  - FIBROMYALGIA [None]
  - FLUSHING [None]
  - LARYNGITIS [None]
  - NO THERAPEUTIC RESPONSE [None]
  - SINUSITIS [None]
